FAERS Safety Report 10019313 (Version 1)
Quarter: 2014Q1

REPORT INFORMATION
  Report Type: Spontaneous
  Country: CH (occurrence: CH)
  Receive Date: 20140318
  Receipt Date: 20140318
  Transmission Date: 20141002
  Serious: Yes (Hospitalization, Other)
  Sender: FDA-Public Use
  Company Number: CH-PFIZER INC-2014072749

PATIENT
  Age: 53 Year
  Sex: Female

DRUGS (2)
  1. LYRICA [Suspect]
     Indication: SCHIZOPHRENIA, PARANOID TYPE
     Dosage: 100 MG, 2X/DAY
     Route: 048
     Dates: end: 20140212
  2. LEPONEX ^NOVARTIS^ [Interacting]
     Indication: SCHIZOPHRENIA, PARANOID TYPE
     Dosage: 300 MG, 1X/DAY
     Route: 048
     Dates: start: 20140208, end: 20140212

REACTIONS (16)
  - Off label use [Unknown]
  - Drug interaction [Unknown]
  - Antipsychotic drug level increased [Recovered/Resolved]
  - Tachycardia [Unknown]
  - Restlessness [Unknown]
  - Gait disturbance [Unknown]
  - Asthenia [Unknown]
  - Asthenia [Unknown]
  - Pneumonia aspiration [Unknown]
  - Liver disorder [Not Recovered/Not Resolved]
  - Mixed liver injury [Not Recovered/Not Resolved]
  - Alanine aminotransferase increased [Not Recovered/Not Resolved]
  - Aspartate aminotransferase increased [Not Recovered/Not Resolved]
  - Gamma-glutamyltransferase increased [Not Recovered/Not Resolved]
  - Blood alkaline phosphatase increased [Not Recovered/Not Resolved]
  - Blood creatine phosphokinase increased [Not Recovered/Not Resolved]
